FAERS Safety Report 8174120-2 (Version None)
Quarter: 2012Q1

REPORT INFORMATION
  Report Type: 
  Country: None (occurrence: None)
  Receive Date: 20120224
  Receipt Date: 20120213
  Transmission Date: 20120608
  Serious: Yes (Death, Other)
  Sender: FDA-Public Use
  Company Number: 2012P1005299

PATIENT
  Age: 52 Year
  Sex: Female

DRUGS (2)
  1. HYDROXYCHLOROQUINE SULFATE [Suspect]
     Indication: SYSTEMIC LUPUS ERYTHEMATOSUS
     Dosage: 400 MG;QD;
  2. MYCOPHENOLATE MOFETIL [Concomitant]
     Dosage: 500 MG;QD;

REACTIONS (11)
  - PNEUMONIA ASPIRATION [None]
  - NAUSEA [None]
  - VOMITING [None]
  - DIPLOPIA [None]
  - LUNG DISORDER [None]
  - HYPOTONIA [None]
  - TREMOR [None]
  - NYSTAGMUS [None]
  - PROGRESSIVE MULTIFOCAL LEUKOENCEPHALOPATHY [None]
  - DYSPHAGIA [None]
  - PULMONARY EMBOLISM [None]
